FAERS Safety Report 6936366-8 (Version None)
Quarter: 2010Q3

REPORT INFORMATION
  Report Type: 
  Country: None (occurrence: None)
  Receive Date: 20100818
  Receipt Date: 20100809
  Transmission Date: 20110219
  Serious: Yes (Disabling)
  Sender: FDA-Public Use
  Company Number: OSCN-PR-1008S-0214

PATIENT
  Sex: Female

DRUGS (1)
  1. OMNISCAN (GADODIAMIDE) [Suspect]
     Indication: PRODUCT USED FOR UNKNOWN INDICATION
     Dosage: NR, SINGLE DOSE

REACTIONS (2)
  - AMPUTATION [None]
  - NEPHROGENIC SYSTEMIC FIBROSIS [None]
